FAERS Safety Report 4771418-2 (Version None)
Quarter: 2005Q3

REPORT INFORMATION
  Report Type: 
  Country: None (occurrence: None)
  Receive Date: 20050915
  Receipt Date: 20050901
  Transmission Date: 20060218
  Serious: Yes (Death, Hospitalization)
  Sender: FDA-Public Use
  Company Number: US-2005-016520

PATIENT
  Age: 64 Year
  Sex: Female
  Weight: 54.4 kg

DRUGS (7)
  1. BETASERON [Suspect]
     Indication: MULTIPLE SCLEROSIS
     Dosage: SUBCUTANEOUS
     Route: 058
     Dates: start: 19940916, end: 20050801
  2. METFORMIN HCL [Concomitant]
  3. OXYBUTYNIN CHLORIDE [Concomitant]
  4. LISINOPRIL [Concomitant]
  5. BACLOFEN [Concomitant]
  6. FOSAMAX [Concomitant]
  7. PHENOBARBITAL TAB [Concomitant]

REACTIONS (3)
  - DYSPHAGIA [None]
  - PNEUMONIA [None]
  - SEPSIS [None]
